FAERS Safety Report 6755028-3 (Version None)
Quarter: 2010Q2

REPORT INFORMATION
  Report Type: 
  Country: None (occurrence: None)
  Receive Date: 20100604
  Receipt Date: 20100602
  Transmission Date: 20101027
  Serious: Yes (Hospitalization, Other)
  Sender: FDA-Public Use
  Company Number: US-ASTRAZENECA-2007UW14871

PATIENT
  Age: 375 Month
  Sex: Female
  Weight: 88.5 kg

DRUGS (15)
  1. SEROQUEL [Suspect]
     Indication: BIPOLAR I DISORDER
     Dosage: 200 MG TO 400 MG
     Route: 048
     Dates: start: 20041101, end: 20060701
  2. SEROQUEL [Suspect]
     Indication: DEPRESSION
     Dosage: 200 MG TO 400 MG
     Route: 048
     Dates: start: 20041101, end: 20060701
  3. SEROQUEL [Suspect]
     Indication: BIPOLAR DISORDER
     Dosage: 200 MG TO 400 MG
     Route: 048
     Dates: start: 20041101, end: 20060701
  4. SEROQUEL [Suspect]
     Dosage: 25MG-400MG
     Route: 048
     Dates: start: 20041116
  5. SEROQUEL [Suspect]
     Dosage: 25MG-400MG
     Route: 048
     Dates: start: 20041116
  6. SEROQUEL [Suspect]
     Dosage: 25MG-400MG
     Route: 048
     Dates: start: 20041116
  7. LITHIUM CARBONATE [Concomitant]
  8. WELLBUTRIN [Concomitant]
  9. ALTACE [Concomitant]
     Indication: HYPERTENSION
     Route: 048
     Dates: start: 20070803
  10. ZOCOR [Concomitant]
  11. ESKALITH [Concomitant]
     Dosage: 900MG-2500MG
     Dates: start: 20041102
  12. AVANDAMET [Concomitant]
     Dosage: ONE EVERY DAY(4-1000MG STRENGTH)
     Dates: start: 20061127
  13. PHENERGAN [Concomitant]
     Indication: NAUSEA
     Dosage: 50MG-100MG AS REQUIRED
     Route: 048
     Dates: start: 20060103
  14. VICODIN [Concomitant]
     Indication: PAIN
     Dosage: 1-2 TABLET AS REQUIRED
     Route: 048
     Dates: start: 20060103
  15. VYTORIN [Concomitant]
     Dosage: 10-20 MG
     Route: 048
     Dates: start: 20070619

REACTIONS (18)
  - ABDOMINAL PAIN [None]
  - ABDOMINAL PAIN UPPER [None]
  - BLOOD CHOLESTEROL INCREASED [None]
  - DIABETES MELLITUS [None]
  - DIABETES MELLITUS INADEQUATE CONTROL [None]
  - DIABETIC COMA [None]
  - DIABETIC KETOACIDOSIS [None]
  - HYPERCHOLESTEROLAEMIA [None]
  - HYPERGLYCAEMIA [None]
  - HYPERLIPIDAEMIA [None]
  - HYPOGLYCAEMIA [None]
  - LIGAMENT DISORDER [None]
  - LIGAMENT RUPTURE [None]
  - LIVER DISORDER [None]
  - MENISCUS LESION [None]
  - OBESITY [None]
  - TYPE 1 DIABETES MELLITUS [None]
  - WEIGHT DECREASED [None]
